FAERS Safety Report 5713286-8 (Version None)
Quarter: 2008Q2

REPORT INFORMATION
  Report Type: 
  Country: None (occurrence: None)
  Receive Date: 20080422
  Receipt Date: 20080409
  Transmission Date: 20081010
  Serious: Yes (Other)
  Sender: FDA-Public Use
  Company Number: JP-ELI_LILLY_AND_COMPANY-JP200804002582

PATIENT
  Sex: Male
  Weight: 74.9 kg

DRUGS (5)
  1. SOMATROPIN [Suspect]
     Indication: GROWTH HORMONE DEFICIENCY
     Dosage: 0.257 MG, DAILY (1/D)
     Route: 058
     Dates: start: 20070606, end: 20070703
  2. SOMATROPIN [Suspect]
     Dosage: 0.4 MG, 6/W
     Route: 058
     Dates: start: 20070704, end: 20080101
  3. CORTRIL [Concomitant]
     Indication: SECONDARY ADRENOCORTICAL INSUFFICIENCY
     Dosage: 20 MG, DAILY (1/D)
     Route: 048
     Dates: start: 20060704
  4. THYRADIN S [Concomitant]
     Indication: SECONDARY HYPOTHYROIDISM
     Dosage: 50 UG, DAILY (1/D)
     Route: 048
     Dates: start: 20060711
  5. OLMESARTAN MEDOXOMIL [Concomitant]
     Indication: HYPERTENSION
     Dosage: 20 MG, DAILY (1/D)
     Route: 048
     Dates: start: 20070307

REACTIONS (1)
  - THYROID CANCER [None]
